FAERS Safety Report 7934199-7 (Version None)
Quarter: 2011Q4

REPORT INFORMATION
  Report Type: 
  Country: None (occurrence: None)
  Receive Date: 20111122
  Receipt Date: 20111116
  Transmission Date: 20120403
  Serious: Yes (Death, Disabling, Other)
  Sender: FDA-Public Use
  Company Number: JP-PFIZER INC-2011235899

PATIENT
  Age: 72 Year
  Sex: Female
  Weight: 34 kg

DRUGS (2)
  1. MYCOBUTIN [Suspect]
     Indication: ATYPICAL MYCOBACTERIAL INFECTION
     Dosage: 150 MG, 1X/DAY
     Route: 048
     Dates: start: 20090710, end: 20100210
  2. CLARITHROMYCIN [Suspect]
     Indication: ATYPICAL MYCOBACTERIAL INFECTION
     Dosage: 400 MG, 2X/DAY
     Route: 048
     Dates: start: 20071017, end: 20100401

REACTIONS (2)
  - UVEITIS [None]
  - ATYPICAL MYCOBACTERIAL INFECTION [None]
